FAERS Safety Report 23271258 (Version 2)
Quarter: 2023Q4

REPORT INFORMATION
  Report Type: Spontaneous
  Country: CN (occurrence: CN)
  Receive Date: 20231207
  Receipt Date: 20231219
  Transmission Date: 20240110
  Serious: Yes (Other)
  Sender: FDA-Public Use
  Company Number: CN-DSJP-DSJ-2023-150108

PATIENT
  Age: 61 Year
  Sex: Female
  Weight: 57 kg

DRUGS (1)
  1. ENHERTU [Suspect]
     Active Substance: FAM-TRASTUZUMAB DERUXTECAN-NXKI
     Indication: Neoplasm
     Dosage: 300 MG, QD
     Route: 041
     Dates: start: 20231202, end: 20231202

REACTIONS (1)
  - Myelosuppression [Recovering/Resolving]
